FAERS Safety Report 15428262 (Version 4)
Quarter: 2025Q3

REPORT INFORMATION
  Report Type: Spontaneous
  Country: EU (occurrence: EU)
  Receive Date: 20180926
  Receipt Date: 20250715
  Transmission Date: 20251021
  Serious: Yes (Hospitalization, Other)
  Sender: AUROBINDO
  Company Number: EU-AUROBINDO-AUR-APL-2018-047003

PATIENT
  Age: 1 Year
  Sex: Male

DRUGS (2)
  1. TRAMADOL [Suspect]
     Active Substance: TRAMADOL
     Indication: Accidental exposure to product by child
     Route: 065
  2. NALOXONE [Concomitant]
     Active Substance: NALOXONE
     Indication: Product used for unknown indication
     Route: 065

REACTIONS (10)
  - Poisoning [Recovered/Resolved]
  - Altered state of consciousness [Recovered/Resolved]
  - Hypoventilation [Recovered/Resolved]
  - Miosis [Recovered/Resolved]
  - Bradypnoea [Recovering/Resolving]
  - Apnoea [Recovering/Resolving]
  - Coma scale abnormal [Recovered/Resolved]
  - Product use issue [Recovering/Resolving]
  - Accidental exposure to product by child [Recovered/Resolved]
  - Accidental overdose [Recovered/Resolved]
